FAERS Safety Report 15667776 (Version 1)
Quarter: 2018Q4

REPORT INFORMATION
  Report Type: Spontaneous
  Country: DE (occurrence: DE)
  Receive Date: 20181128
  Receipt Date: 20181128
  Transmission Date: 20190205
  Serious: Yes (Other)
  Sender: FDA-Public Use
  Company Number: DE-ELI_LILLY_AND_COMPANY-DE201811008413

PATIENT
  Age: 38 Year
  Sex: Female

DRUGS (1)
  1. HUMATROPE [Suspect]
     Active Substance: SOMATROPIN
     Indication: GROWTH HORMONE DEFICIENCY
     Dosage: UNK, UNKNOWN
     Route: 058

REACTIONS (10)
  - Menstruation irregular [Unknown]
  - Hyperprolactinaemia [Unknown]
  - Ovarian cyst [Unknown]
  - Abortion [Unknown]
  - Pituitary tumour [Unknown]
  - Insulinoma [Unknown]
  - Infertility [Unknown]
  - Carbohydrate intolerance [Unknown]
  - Hypoglycaemia [Unknown]
  - Multiple sclerosis [Unknown]
